FAERS Safety Report 5372544-X (Version None)
Quarter: 2007Q2

REPORT INFORMATION
  Report Type: 
  Country: None (occurrence: None)
  Receive Date: 20070627
  Receipt Date: 20070620
  Transmission Date: 20071010
  Serious: Yes (Death)
  Sender: FDA-Public Use
  Company Number: JP-ABBOTT-07P-087-0371214-00

PATIENT
  Age: 29 Month
  Sex: Male
  Weight: 13 kg

DRUGS (11)
  1. SEVOFLURANE [Suspect]
     Indication: GENERAL ANAESTHESIA
     Dosage: 3-5%
     Route: 055
  2. SEVOFLURANE [Suspect]
     Indication: MAINTENANCE OF ANAESTHESIA
  3. DEXAMETHASONE ACETATE [Suspect]
     Indication: DRUG USE FOR UNKNOWN INDICATION
     Route: 065
  4. NITROUS OXIDE W/ OXYGEN [Suspect]
     Indication: GENERAL ANAESTHESIA
     Dosage: UNKNOWN
     Route: 055
  5. NITROUS OXIDE W/ OXYGEN [Suspect]
     Indication: MAINTENANCE OF ANAESTHESIA
  6. OXYGEN [Suspect]
     Indication: GENERAL ANAESTHESIA
     Dosage: UNKNOWN
     Route: 055
  7. OXYGEN [Suspect]
     Indication: MAINTENANCE OF ANAESTHESIA
  8. VECURONIUM BROMIDE [Suspect]
     Indication: MAINTENANCE OF ANAESTHESIA
     Route: 065
  9. FENTANYL [Suspect]
     Indication: MAINTENANCE OF ANAESTHESIA
     Route: 065
  10. DICLOFENAC [Suspect]
     Indication: ANALGESIC EFFECT
     Route: 054
  11. FOSFOMYCIN SODIUM [Suspect]
     Indication: DRUG USE FOR UNKNOWN INDICATION
     Route: 065

REACTIONS (15)
  - BRADYCARDIA [None]
  - DEPRESSED LEVEL OF CONSCIOUSNESS [None]
  - HAEMODIALYSIS [None]
  - HEPATIC CONGESTION [None]
  - HEPATIC FAILURE [None]
  - HEPATIC NECROSIS [None]
  - HEPATIC STEATOSIS [None]
  - HEPATORENAL FAILURE [None]
  - HYPOXIA [None]
  - METABOLIC ACIDOSIS [None]
  - MULTI-ORGAN FAILURE [None]
  - OBSTRUCTIVE AIRWAYS DISORDER [None]
  - RESPIRATORY ACIDOSIS [None]
  - RETROPERITONEAL NEOPLASM [None]
  - RHABDOMYOLYSIS [None]
